FAERS Safety Report 18694928 (Version 1)
Quarter: 2021Q1

REPORT INFORMATION
  Report Type: Spontaneous
  Country: US (occurrence: US)
  Receive Date: 20210104
  Receipt Date: 20210104
  Transmission Date: 20210419
  Serious: Yes (Hospitalization, Other)
  Sender: FDA-Public Use
  Company Number: US-TARO-2020TAR01851

PATIENT
  Age: 34 Year
  Sex: Female

DRUGS (1)
  1. LAMOTRIGINE. [Suspect]
     Active Substance: LAMOTRIGINE
     Indication: PRODUCT USED FOR UNKNOWN INDICATION
     Dosage: UNK
     Route: 065

REACTIONS (6)
  - Myoclonus [Unknown]
  - Hypertension [Unknown]
  - Mental disorder [Unknown]
  - Hyperthermia [Unknown]
  - Eyelid myoclonus [Unknown]
  - Tachycardia [Unknown]
